FAERS Safety Report 13564587 (Version 1)
Quarter: 2017Q2

REPORT INFORMATION
  Report Type: Report from Study
  Country: DE (occurrence: DE)
  Receive Date: 20170519
  Receipt Date: 20170519
  Transmission Date: 20170830
  Serious: Yes (Hospitalization)
  Sender: FDA-Public Use
  Company Number: PHHO2017DE006752

PATIENT
  Age: 63 Year
  Sex: Male
  Weight: 65 kg

DRUGS (8)
  1. TACROLIMUS. [Concomitant]
     Active Substance: TACROLIMUS
     Dosage: 0.5 MG, QD
     Route: 048
     Dates: start: 20170306, end: 20170315
  2. TACROLIMUS. [Concomitant]
     Active Substance: TACROLIMUS
     Indication: IMMUNOSUPPRESSION
     Dosage: 0.5 MG, QD
     Route: 048
     Dates: start: 20161101, end: 20170301
  3. BUDESONIDE. [Concomitant]
     Active Substance: BUDESONIDE
     Dosage: 3 MG, TID
     Route: 048
     Dates: start: 20170321
  4. KRP203 [Suspect]
     Active Substance: INVESTIGATIONAL PRODUCT
     Indication: STEM CELL TRANSPLANT
     Dosage: 3 MG, QD
     Route: 048
     Dates: start: 20161025
  5. TACROLIMUS. [Concomitant]
     Active Substance: TACROLIMUS
     Dosage: 0.5 MG, QOD
     Route: 048
     Dates: start: 20170316, end: 20170320
  6. BUDESONIDE. [Concomitant]
     Active Substance: BUDESONIDE
     Indication: PROPHYLAXIS AGAINST GRAFT VERSUS HOST DISEASE
     Dosage: 3 MG, TID
     Route: 048
     Dates: start: 20170306, end: 20170320
  7. PREDNISOLONE. [Suspect]
     Active Substance: PREDNISOLONE
     Indication: PROPHYLAXIS AGAINST GRAFT VERSUS HOST DISEASE
     Dosage: 60 MG, QD
     Route: 048
     Dates: start: 20170321
  8. TACROLIMUS. [Concomitant]
     Active Substance: TACROLIMUS
     Dosage: 2 MG, QD
     Route: 048
     Dates: start: 20170410

REACTIONS (3)
  - Thrombosis [Not Recovered/Not Resolved]
  - Graft versus host disease [Recovered/Resolved]
  - Diarrhoea [Recovered/Resolved]

NARRATIVE: CASE EVENT DATE: 20170321
